FAERS Safety Report 9436816 (Version 1)
Quarter: 2013Q3

REPORT INFORMATION
  Report Type: Spontaneous
  Country: US (occurrence: US)
  Receive Date: 20130802
  Receipt Date: 20130802
  Transmission Date: 20140515
  Serious: No
  Sender: FDA-Public Use
  Company Number: US-PFIZER INC-2013222512

PATIENT
  Sex: Female

DRUGS (3)
  1. MORPHINE SULFATE [Suspect]
     Dosage: UNK
  2. FLECAINIDE ACETATE [Suspect]
     Dosage: UNK
  3. PSEUDOEPHEDRINE [Suspect]
     Dosage: UNK

REACTIONS (2)
  - Drug hypersensitivity [Unknown]
  - Vomiting [Unknown]
